FAERS Safety Report 9182131 (Version 1)
Quarter: 2013Q1

REPORT INFORMATION
  Report Type: Spontaneous
  Country: US (occurrence: None)
  Receive Date: 20120622
  Receipt Date: 20120622
  Transmission Date: 20140127
  Serious: Yes (Life-Threatening, Hospitalization)
  Sender: FDA-Public Use
  Company Number: QSC-2011-0093

PATIENT
  Age: 3 Year
  Sex: Male

DRUGS (1)
  1. H.P. ACTHAR [Suspect]
     Route: 030
     Dates: start: 2009, end: 2009

REACTIONS (1)
  - Bacterial sepsis [None]
